FAERS Safety Report 8852223 (Version 1)
Quarter: 2012Q4

REPORT INFORMATION
  Report Type: Spontaneous
  Country: PL (occurrence: None)
  Receive Date: 20121017
  Receipt Date: 20121017
  Transmission Date: 20130627
  Serious: Yes (Hospitalization, Other)
  Sender: FDA-Public Use
  Company Number: 2012MA011978

PATIENT
  Age: 59 Year
  Sex: Female

DRUGS (7)
  1. GEMCITABINE HYDROCHLORIDE [Suspect]
     Indication: MALIGNANT PERIPHERAL NERVE SHEATH TUMOR
     Dates: start: 201001, end: 201012
  2. GEMCITABINE HYDROCHLORIDE [Suspect]
     Indication: METASTASIS
     Dates: start: 201001, end: 201012
  3. DOXORUBICIN [Concomitant]
  4. DOCETAXEL [Concomitant]
  5. DOXORUBICIN [Concomitant]
  6. IFOSFAMIDE [Concomitant]
  7. ALTEPLASE [Concomitant]

REACTIONS (15)
  - Leukopenia [None]
  - Anaemia [None]
  - Hepatotoxicity [None]
  - Pyrexia [None]
  - Disease recurrence [None]
  - Purpura [None]
  - Chest pain [None]
  - Condition aggravated [None]
  - General physical health deterioration [None]
  - Metastases to pleura [None]
  - Metastases to spine [None]
  - Renal impairment [None]
  - Respiratory failure [None]
  - Peripheral nerve sheath tumour malignant [None]
  - Malignant neoplasm progression [None]
